FAERS Safety Report 4873892-X (Version None)
Quarter: 2006Q1

REPORT INFORMATION
  Report Type: 
  Country: None (occurrence: None)
  Receive Date: 20060105
  Receipt Date: 20060105
  Transmission Date: 20060701
  Serious: Yes (Hospitalization)
  Sender: FDA-Public Use
  Company Number: None

PATIENT
  Age: 75 Year
  Sex: Female
  Weight: 87.0906 kg

DRUGS (3)
  1. GEMZAR [Suspect]
     Indication: PERITONEAL CARCINOMA
     Dosage: 1900 MG IV Q 21 DAYS D1,8
     Route: 042
     Dates: start: 20051214
  2. GEMZAR [Suspect]
     Indication: PERITONEAL CARCINOMA
     Dosage: 1900 MG IV Q 21 DAYS D1,8
     Route: 042
     Dates: start: 20051221
  3. CARBOPLATIN [Suspect]
     Indication: PERITONEAL CARCINOMA
     Dosage: ANC 5 IV Q 21 DAYS
     Route: 042

REACTIONS (5)
  - BLOOD CULTURE POSITIVE [None]
  - CHILLS [None]
  - ESCHERICHIA INFECTION [None]
  - NEUTROPENIA [None]
  - URINARY TRACT INFECTION [None]
